FAERS Safety Report 19795179 (Version 1)
Quarter: 2021Q3

REPORT INFORMATION
  Report Type: Spontaneous
  Country: JP (occurrence: JP)
  Receive Date: 20210907
  Receipt Date: 20210907
  Transmission Date: 20211014
  Serious: Yes (Hospitalization, Other)
  Sender: FDA-Public Use
  Company Number: JP-TEVA-2021-JP-1949854

PATIENT
  Age: 30 Year
  Sex: Female

DRUGS (8)
  1. CISPLATIN. [Suspect]
     Active Substance: CISPLATIN
     Indication: GESTATIONAL TROPHOBLASTIC TUMOUR
     Dosage: STANDARD DOSE TIP THERAPY;ON DAYS 2?5 EVERY 3 WEEKS; RECEIVED TOTAL 8 CYCLES
     Route: 065
  2. PACLITAXEL. [Suspect]
     Active Substance: PACLITAXEL
     Indication: GESTATIONAL TROPHOBLASTIC TUMOUR
     Dosage: STANDARD DOSE TIP THERAPY; ON DAY 1 EVERY 3 WEEKS; RECEIVED TOTAL 8 CYCLES
     Route: 065
  3. IFOSFAMIDE. [Suspect]
     Active Substance: IFOSFAMIDE
     Indication: GESTATIONAL TROPHOBLASTIC TUMOUR
     Dosage: STANDARD DOSE TIP THERAPY;1 G/M2 ON DAYS 2?5 EVERY 3 WEEKS; RECEIVED TOTAL 8 CYCLES
     Route: 065
  4. METHOTREXATE. [Concomitant]
     Active Substance: METHOTREXATE
     Indication: GESTATIONAL TROPHOBLASTIC TUMOUR
     Dosage: EMA/CO REGIMEN; ON DAY 1
     Route: 065
  5. ACTINOMYCIN D [Concomitant]
     Active Substance: DACTINOMYCIN
     Indication: GESTATIONAL TROPHOBLASTIC TUMOUR
     Dosage: EMA/CO REGIMEN; ON DAYS 1 AND 2
     Route: 065
  6. VINCRISTINE [Concomitant]
     Active Substance: VINCRISTINE
     Indication: GESTATIONAL TROPHOBLASTIC TUMOUR
     Dosage: EMA/CO REGIMEN; ON DAY 8
     Route: 065
  7. ETOPOSIDE. [Suspect]
     Active Substance: ETOPOSIDE
     Indication: GESTATIONAL TROPHOBLASTIC TUMOUR
     Dosage: EMA/CO REGIMEN; ON DAYS 1 AND 2
     Route: 065
  8. CYCLOPHOSPHAMIDE. [Concomitant]
     Active Substance: CYCLOPHOSPHAMIDE
     Indication: GESTATIONAL TROPHOBLASTIC TUMOUR
     Dosage: EMA/CO REGIMEN; ON DAY 8
     Route: 065

REACTIONS (13)
  - Back pain [Unknown]
  - Malaise [Unknown]
  - Chest discomfort [Recovered/Resolved]
  - Nausea [Recovering/Resolving]
  - Hypersensitivity [Recovered/Resolved]
  - Anaemia [Recovering/Resolving]
  - Platelet count decreased [Unknown]
  - Peripheral sensory neuropathy [Recovering/Resolving]
  - Dyspnoea [Recovered/Resolved]
  - Dysgeusia [Recovering/Resolving]
  - Asthenia [Recovered/Resolved]
  - Flushing [Recovered/Resolved]
  - Neutropenia [Recovered/Resolved]
